FAERS Safety Report 16317060 (Version 6)
Quarter: 2019Q2

REPORT INFORMATION
  Report Type: Spontaneous
  Country: US (occurrence: US)
  Receive Date: 20190515
  Receipt Date: 20190624
  Transmission Date: 20190711
  Serious: Yes (Hospitalization, Other)
  Sender: FDA-Public Use
  Company Number: US-SA-2019SA130208

PATIENT
  Age: 65 Year
  Sex: Female

DRUGS (1)
  1. CABLIVI [Suspect]
     Active Substance: CAPLACIZUMAB-YHDP
     Indication: THROMBOTIC MICROANGIOPATHY
     Dosage: 11 MG, QD
     Route: 058
     Dates: start: 20190501

REACTIONS (10)
  - Tachycardia [Unknown]
  - Platelet count decreased [Unknown]
  - Pyrexia [Unknown]
  - Dyspnoea [Unknown]
  - Haemorrhage [Unknown]
  - Skin abrasion [Unknown]
  - Thrombotic thrombocytopenic purpura [Unknown]
  - Splenectomy [Unknown]
  - Stomatitis [Unknown]
  - Fall [Unknown]

NARRATIVE: CASE EVENT DATE: 2019
